FAERS Safety Report 8094373-9 (Version None)
Quarter: 2012Q1

REPORT INFORMATION
  Report Type: 
  Country: None (occurrence: None)
  Receive Date: 20120130
  Receipt Date: 20120117
  Transmission Date: 20120608
  Serious: Yes (Death, Other)
  Sender: FDA-Public Use
  Company Number: TW-PAR PHARMACEUTICAL, INC-2012SCPR003923

PATIENT

DRUGS (16)
  1. PROPRANOLOL [Suspect]
     Indication: MAJOR DEPRESSION
     Dosage: 10 MG, TID
     Route: 065
  2. MOCLOBEMIDE [Suspect]
     Dosage: 4500 MG, UNKNOWN
     Route: 048
  3. FLUOXETINE [Suspect]
     Indication: MAJOR DEPRESSION
     Dosage: 20 MG, / DAY
     Route: 065
  4. ALPRAZOLAM [Suspect]
     Indication: MAJOR DEPRESSION
     Dosage: 0.5 MG, TID
     Route: 065
  5. BROMAZEPAM [Suspect]
     Dosage: 60 MG, UNKNOWN
     Route: 048
  6. FLUOXETINE [Suspect]
     Dosage: 200 MG, UNKNOWN
     Route: 048
  7. PROPRANOLOL [Suspect]
     Dosage: 300 MG, UNKNOWN
     Route: 048
  8. MIDAZOLAM [Suspect]
     Indication: MAJOR DEPRESSION
     Dosage: 7.5 MG, HS
     Route: 065
  9. ESTAZOLAM [Suspect]
     Indication: MAJOR DEPRESSION
     Dosage: 2 MG, HS
     Route: 065
  10. ESTAZOLAM [Suspect]
     Dosage: 20 MG, UNKNOWN
     Route: 048
  11. LORAZEPAM [Suspect]
     Dosage: 10 MG, UNKNOWN
     Route: 048
  12. MIDAZOLAM [Suspect]
     Dosage: 75 MG, UNKNOWN
     Route: 048
  13. ALPRAZOLAM [Suspect]
     Dosage: 15 MG, UNKNOWN
     Route: 048
  14. MOCLOBEMIDE [Suspect]
     Indication: MAJOR DEPRESSION
     Dosage: 150 MG, TID
     Route: 065
  15. BROMAZEPAM [Suspect]
     Indication: MAJOR DEPRESSION
     Dosage: 6 MG, HS
     Route: 065
  16. LORAZEPAM [Suspect]
     Indication: MAJOR DEPRESSION
     Dosage: 1 MG, HS
     Route: 065

REACTIONS (5)
  - MULTIPLE DRUG OVERDOSE INTENTIONAL [None]
  - SEROTONIN SYNDROME [None]
  - DISSEMINATED INTRAVASCULAR COAGULATION [None]
  - DEATH [None]
  - CIRCULATORY COLLAPSE [None]
